FAERS Safety Report 7027107-7 (Version None)
Quarter: 2010Q4

REPORT INFORMATION
  Report Type: 
  Country: None (occurrence: None)
  Receive Date: 20101001
  Receipt Date: 20101001
  Transmission Date: 20110411
  Serious: Yes (Other)
  Sender: FDA-Public Use
  Company Number: None

PATIENT
  Sex: Female
  Weight: 61.6892 kg

DRUGS (1)
  1. LEVOXYL [Suspect]
     Dosage: 88 MCG
     Dates: start: 20091203, end: 20100927

REACTIONS (1)
  - THYROID DISORDER [None]
